FAERS Safety Report 8996172 (Version 2)
Quarter: 2013Q3

REPORT INFORMATION
  Report Type: Spontaneous
  Country: CH (occurrence: CH)
  Receive Date: 20130103
  Receipt Date: 20130904
  Transmission Date: 20140515
  Serious: Yes (Life-Threatening, Other)
  Sender: FDA-Public Use
  Company Number: PHHY2012CH121784

PATIENT
  Age: 70 Year
  Sex: Male
  Weight: 53 kg

DRUGS (2)
  1. TACROLIMUS [Suspect]
     Indication: BONE MARROW TRANSPLANT
     Dosage: 0.14 MG/KG, DAILY FOR 4 DAYS
     Route: 048
  2. TACROLIMUS [Suspect]
     Indication: GRAFT VERSUS HOST DISEASE

REACTIONS (8)
  - Toxicity to various agents [Recovered/Resolved]
  - Mydriasis [Recovered/Resolved]
  - Tremor [Recovered/Resolved]
  - Renal impairment [Recovered/Resolved]
  - Encephalopathy [Recovered/Resolved]
  - Confusional state [Recovered/Resolved]
  - Aphasia [Recovered/Resolved]
  - Accidental overdose [Unknown]
